FAERS Safety Report 4973107-8 (Version None)
Quarter: 2006Q2

REPORT INFORMATION
  Report Type: 
  Country: None (occurrence: None)
  Receive Date: 20060414
  Receipt Date: 20050707
  Transmission Date: 20061013
  Serious: Yes (Hospitalization)
  Sender: FDA-Public Use
  Company Number: US-MERCK-0507USA01254

PATIENT
  Age: 62 Year
  Sex: Female
  Weight: 75 kg

DRUGS (2)
  1. VIOXX [Suspect]
     Indication: ARTHRALGIA
     Route: 048
     Dates: start: 20011231, end: 20040831
  2. NEXIUM [Concomitant]
     Route: 048

REACTIONS (26)
  - ANGIOPATHY [None]
  - APHASIA [None]
  - ARTERIOVENOUS MALFORMATION [None]
  - CAROTID ARTERY OCCLUSION [None]
  - CAROTID ARTERY STENOSIS [None]
  - CEREBRAL INFARCTION [None]
  - CEREBROVASCULAR ACCIDENT [None]
  - COLONIC POLYP [None]
  - DIVERTICULUM INTESTINAL [None]
  - DRUG EFFECT DECREASED [None]
  - EMOTIONAL DISTRESS [None]
  - FAECES DISCOLOURED [None]
  - FOOT FRACTURE [None]
  - GASTROOESOPHAGEAL REFLUX DISEASE [None]
  - HAEMOGLOBIN DECREASED [None]
  - HEMIPARESIS [None]
  - HIATUS HERNIA [None]
  - HYPERAEMIA [None]
  - OCCULT BLOOD POSITIVE [None]
  - OESOPHAGITIS [None]
  - PARALYSIS [None]
  - RASH [None]
  - SPEECH DISORDER [None]
  - VAGINAL DISORDER [None]
  - VAGINAL LESION [None]
  - VOMITING [None]
